APPROVED DRUG PRODUCT: XATMEP
Active Ingredient: METHOTREXATE SODIUM
Strength: EQ 2.5MG BASE/ML
Dosage Form/Route: SOLUTION;ORAL
Application: N208400 | Product #001
Applicant: AZURITY PHARMACEUTICALS INC
Approved: Apr 25, 2017 | RLD: Yes | RS: Yes | Type: RX

PATENTS:
Patent 10231927 | Expires: Jan 2, 2033
Patent 10231927 | Expires: Jan 2, 2033
Patent 11116724 | Expires: Jan 2, 2033
Patent 11116724 | Expires: Jan 2, 2033
Patent 11969503 | Expires: Jan 2, 2033
Patent 12396947 | Expires: Jan 2, 2033
Patent 10610485 | Expires: Jan 2, 2033
Patent 9855215 | Expires: Jan 2, 2033
Patent 9259427 | Expires: Jan 2, 2033